FAERS Safety Report 8990009 (Version 2)
Quarter: 2013Q1

REPORT INFORMATION
  Report Type: Report from Study
  Country: US (occurrence: US)
  Receive Date: 20121228
  Receipt Date: 20130206
  Transmission Date: 20140127
  Serious: Yes (Hospitalization)
  Sender: FDA-Public Use
  Company Number: US-ACTELION-A-NJ2012-76701

PATIENT
  Age: 60 Year
  Sex: Male

DRUGS (2)
  1. VENTAVIS [Suspect]
     Indication: PULMONARY HYPERTENSION
     Dosage: UNK
     Route: 055
  2. SILDENAFIL [Concomitant]
     Dosage: UNK

REACTIONS (4)
  - Diabetes mellitus [Unknown]
  - Respiratory therapy [Unknown]
  - Oxygen saturation decreased [Unknown]
  - Dyspnoea [Unknown]
